FAERS Safety Report 8991282 (Version 1)
Quarter: 2012Q4

REPORT INFORMATION
  Report Type: Report from Study
  Country: CA (occurrence: CA)
  Receive Date: 20121231
  Receipt Date: 20121231
  Transmission Date: 20130627
  Serious: Yes (Other)
  Sender: FDA-Public Use
  Company Number: CA-ROCHE-1173021

PATIENT
  Age: 57 Year
  Sex: Female

DRUGS (7)
  1. OMALIZUMAB [Suspect]
     Indication: ASTHMA
     Route: 058
     Dates: start: 20090205
  2. OMALIZUMAB [Suspect]
     Route: 058
     Dates: start: 20090630
  3. SYMBICORT [Concomitant]
  4. PREDNISONE [Concomitant]
  5. PULMICORT [Concomitant]
  6. SALINEX [Concomitant]
  7. IMOVANE [Concomitant]

REACTIONS (15)
  - Pneumonia [Unknown]
  - Sinusitis [Unknown]
  - Ecchymosis [Unknown]
  - Fall [Unknown]
  - Bronchitis [Unknown]
  - Influenza [Unknown]
  - Upper respiratory tract infection [Unknown]
  - Nasopharyngitis [Unknown]
  - Productive cough [Unknown]
  - Hypotension [Unknown]
  - Sciatic nerve injury [Recovering/Resolving]
  - Fatigue [Unknown]
  - Influenza like illness [Unknown]
  - Cough [Recovered/Resolved]
  - Thirst [Recovered/Resolved]
